FAERS Safety Report 19661679 (Version 2)
Quarter: 2021Q3

REPORT INFORMATION
  Report Type: Spontaneous
  Country: US (occurrence: US)
  Receive Date: 20210805
  Receipt Date: 20210809
  Transmission Date: 20211014
  Serious: No
  Sender: FDA-Public Use
  Company Number: US-BIOGEN-2020BI00898014

PATIENT
  Sex: Female

DRUGS (2)
  1. TYSABRI [Suspect]
     Active Substance: NATALIZUMAB
     Indication: MULTIPLE SCLEROSIS
     Route: 042
     Dates: start: 20150722
  2. TYSABRI [Suspect]
     Active Substance: NATALIZUMAB
     Route: 042

REACTIONS (4)
  - Prescribed underdose [Not Recovered/Not Resolved]
  - Inappropriate schedule of product administration [Unknown]
  - Memory impairment [Unknown]
  - Malaise [Unknown]
